FAERS Safety Report 8042709-7 (Version None)
Quarter: 2012Q1

REPORT INFORMATION
  Report Type: 
  Country: None (occurrence: None)
  Receive Date: 20120112
  Receipt Date: 20120103
  Transmission Date: 20120608
  Serious: Yes (Other)
  Sender: FDA-Public Use
  Company Number: US-ACTELION-A-US2011-58457

PATIENT

DRUGS (14)
  1. POTASSIUM CHLORIDE [Concomitant]
  2. OXYGEN [Concomitant]
  3. EPOPROSTENOL SODIUM [Suspect]
     Indication: PULMONARY ARTERIAL HYPERTENSION
     Dosage: 48 NG/KG, PER MIN
     Route: 042
     Dates: start: 20101215
  4. DIGOXIN [Concomitant]
  5. CYCLOBENZAPRINE [Concomitant]
  6. LASIX [Concomitant]
  7. FLUOXETINE HYDROCHLORIDE [Concomitant]
  8. METOLAZONE [Concomitant]
  9. CLINDAMYCIN [Concomitant]
  10. ALLOPURINOL [Concomitant]
  11. COUMADIN [Concomitant]
  12. TRACLEER [Suspect]
     Indication: PULMONARY ARTERIAL HYPERTENSION
     Dosage: UNK
     Route: 048
     Dates: start: 20040226
  13. FAMOTIDINE [Concomitant]
  14. MULTIVITAMIN [Concomitant]

REACTIONS (6)
  - CATHETER SITE DISCHARGE [None]
  - STAPHYLOCOCCAL INFECTION [None]
  - CATHETER PLACEMENT [None]
  - DEVICE LEAKAGE [None]
  - DEVICE RELATED INFECTION [None]
  - CATHETER SITE INFECTION [None]
